FAERS Safety Report 5522256-4 (Version None)
Quarter: 2007Q4

REPORT INFORMATION
  Report Type: 
  Country: None (occurrence: None)
  Receive Date: 20071120
  Receipt Date: 20071113
  Transmission Date: 20080405
  Serious: Yes (Hospitalization, Other)
  Sender: FDA-Public Use
  Company Number: PHNR2005AU01026

PATIENT
  Age: 30 Year
  Sex: Male

DRUGS (1)
  1. CLOZARIL [Suspect]
     Dosage: UNK, UNK
     Dates: start: 20011211, end: 20060501

REACTIONS (21)
  - AGITATION [None]
  - ALANINE AMINOTRANSFERASE INCREASED [None]
  - BLOOD IRON INCREASED [None]
  - CONVULSION [None]
  - DELUSION [None]
  - EMOTIONAL DISTRESS [None]
  - GAMMA-GLUTAMYLTRANSFERASE INCREASED [None]
  - HAEMANGIOMA [None]
  - HAEMOCHROMATOSIS [None]
  - HALLUCINATION, AUDITORY [None]
  - HEPATIC CIRRHOSIS [None]
  - HEPATIC ENZYME INCREASED [None]
  - HEPATOSPLENOMEGALY [None]
  - HYPERSPLENISM [None]
  - MENTAL IMPAIRMENT [None]
  - NEUTROPENIA [None]
  - PLATELET COUNT DECREASED [None]
  - SERUM FERRITIN INCREASED [None]
  - THROMBOCYTOPENIA [None]
  - ULTRASOUND ABDOMEN ABNORMAL [None]
  - WHITE BLOOD CELL COUNT DECREASED [None]
